FAERS Safety Report 8808167 (Version 1)
Quarter: 2012Q4

REPORT INFORMATION
  Report Type: 
  Country: DE (occurrence: DE)
  Receive Date: 20120925
  Receipt Date: 20120925
  Transmission Date: 20130627
  Serious: Yes (Hospitalization)
  Sender: FDA-Public Use
  Company Number: DE-TEVA-358835GER

PATIENT
  Age: 40 Year
  Sex: Male
  Weight: 93 kg

DRUGS (2)
  1. MINOCYCLINE [Suspect]
     Indication: ACNE PUSTULAR
     Dosage: 50 Milligram Daily;
     Route: 048
     Dates: start: 20120425, end: 20120504
  2. PANTOZOL [Concomitant]
     Indication: GASTRITIS
     Route: 048
     Dates: start: 201112

REACTIONS (6)
  - Feeling abnormal [Recovered/Resolved]
  - Dizziness [Recovered/Resolved]
  - Hyperhidrosis [Recovered/Resolved]
  - Nausea [Recovered/Resolved]
  - Vomiting [Recovered/Resolved]
  - Musculoskeletal disorder [Recovered/Resolved]
